FAERS Safety Report 7936014-4 (Version None)
Quarter: 2011Q4

REPORT INFORMATION
  Report Type: 
  Country: None (occurrence: None)
  Receive Date: 20111123
  Receipt Date: 20111121
  Transmission Date: 20120403
  Serious: Yes (Death)
  Sender: FDA-Public Use
  Company Number: JP-ABBOTT-10P-087-0692417-00

PATIENT
  Sex: Male

DRUGS (12)
  1. HUMIRA [Suspect]
     Indication: MELAENA
  2. ANTIBIOTICS-RESISTANT LACTIC ACID BACTERIAE [Concomitant]
     Indication: CROHN'S DISEASE
  3. TIQUIZIUM BROMIDE [Concomitant]
     Indication: CROHN'S DISEASE
  4. MESALAMINE [Concomitant]
     Indication: CROHN'S DISEASE
  5. HUMIRA [Suspect]
     Indication: CHEMOTHERAPY
     Route: 058
     Dates: start: 20101126, end: 20101126
  6. PREDNISOLONE SODIUM SUCCINATE FOR INJECTION [Concomitant]
     Indication: CROHN'S DISEASE
     Route: 042
     Dates: start: 20101116, end: 20101204
  7. CYTARABINE [Suspect]
     Indication: PRODUCT USED FOR UNKNOWN INDICATION
     Dates: start: 20101027
  8. HUMIRA [Suspect]
     Indication: MUCOUS MEMBRANE DISORDER
  9. DAUNORUBICIN HYDROCHLORIDE [Suspect]
     Indication: PRODUCT USED FOR UNKNOWN INDICATION
     Dates: start: 20101027
  10. CHEMOTHERAPY WITH DRUGS INCLUDING CYTARABINE [Concomitant]
     Indication: LEUKAEMIA
  11. HUMIRA [Suspect]
     Indication: CROHN'S DISEASE
  12. PREDNISOLONE [Concomitant]
     Indication: PRODUCT USED FOR UNKNOWN INDICATION

REACTIONS (1)
  - SHOCK HAEMORRHAGIC [None]
